FAERS Safety Report 7957139-3 (Version None)
Quarter: 2011Q4

REPORT INFORMATION
  Report Type: 
  Country: None (occurrence: None)
  Receive Date: 20111205
  Receipt Date: 20111122
  Transmission Date: 20120403
  Serious: Yes (Hospitalization)
  Sender: FDA-Public Use
  Company Number: NL-MEDIMMUNE-MEDI-0014014

PATIENT
  Sex: Male
  Weight: 4.1 kg

DRUGS (2)
  1. SYNAGIS [Suspect]
     Indication: PREMATURE BABY
     Route: 030
     Dates: start: 20110901, end: 20111025
  2. SYNAGIS [Suspect]
     Route: 030
     Dates: start: 20111122, end: 20111122

REACTIONS (1)
  - DEHYDRATION [None]
